FAERS Safety Report 8852824 (Version 1)
Quarter: 2012Q4

REPORT INFORMATION
  Report Type: 
  Country: CH (occurrence: CH)
  Receive Date: 20121022
  Receipt Date: 20121022
  Transmission Date: 20130627
  Serious: Yes (Other)
  Sender: FDA-Public Use
  Company Number: CH-PFIZER INC-2012227899

PATIENT
  Age: 53 Year
  Sex: Male
  Weight: 93 kg

DRUGS (11)
  1. LYRICA [Suspect]
     Indication: DIABETIC NEUROPATHY
     Dosage: 300 mg, 2x/day
     Route: 048
     Dates: start: 201206
  2. CYMBALTA [Interacting]
     Dosage: 60 mg, 1x/day (in the morning)
     Route: 048
     Dates: start: 20120831
  3. ACETYLSALICYLIC ACID [Concomitant]
     Dosage: 100 mg, 1x/day (1-0-0)
     Route: 048
  4. ATACAND PLUS [Concomitant]
     Dosage: 32mg / 12.5 mg 1x/day (1-0-0)
     Route: 048
  5. SORTIS [Concomitant]
     Dosage: 80 mg, 1x/day (0-0-1)
     Route: 048
  6. AMLODIPINE [Concomitant]
     Dosage: 10 mg, 1x/day (0-0-1)
     Route: 048
  7. PANTOZOL [Concomitant]
     Dosage: 40 mg, 2x/day (1-0-1)
     Route: 048
  8. BRILIQUE [Concomitant]
     Dosage: 90 mg, 1x/day (1-0-0)
     Route: 048
  9. PRAMIPEXOLE [Concomitant]
     Dosage: 0.25 mg, 1x/day (0-0-0-1)
     Route: 048
  10. INSULIN [Concomitant]
     Dosage: UNK
  11. TRAMADOL [Concomitant]
     Dosage: UNK

REACTIONS (4)
  - Motor dysfunction [Recovered/Resolved]
  - Balance disorder [Recovering/Resolving]
  - Drug interaction [Recovered/Resolved]
  - Condition aggravated [Recovered/Resolved]
